FAERS Safety Report 10516625 (Version 1)
Quarter: 2014Q4

REPORT INFORMATION
  Report Type: Spontaneous
  Country: US (occurrence: None)
  Receive Date: 20141003
  Receipt Date: 20141003
  Transmission Date: 20150528
  Serious: Yes (Hospitalization)
  Sender: FDA-Public Use
  Company Number: 1372604

PATIENT

DRUGS (3)
  1. PEG-INTERFERON ALFA 2A [Suspect]
     Active Substance: PEGINTERFERON ALFA-2A
     Indication: PRODUCT USED FOR UNKNOWN INDICATION
  2. INCIVEK [Suspect]
     Active Substance: TELAPREVIR
     Indication: PRODUCT USED FOR UNKNOWN INDICATION
     Dosage: 2 PILLS THREE TIMES A DAY (3 IN 1 D) UNKNOWN
  3. RIBAVIRIN (RIBAVIRIN) [Suspect]
     Active Substance: RIBAVIRIN
     Indication: PRODUCT USED FOR UNKNOWN INDICATION

REACTIONS (9)
  - Pruritus [None]
  - Dyspnoea [None]
  - Gastric pH decreased [None]
  - Flatulence [None]
  - Oral pruritus [None]
  - Muscle spasms [None]
  - Anaemia [None]
  - Eye pain [None]
  - Swollen tongue [None]
